FAERS Safety Report 4557926-8 (Version None)
Quarter: 2005Q1

REPORT INFORMATION
  Report Type: 
  Country: None (occurrence: None)
  Receive Date: 20050121
  Receipt Date: 20040130
  Transmission Date: 20050727
  Serious: No
  Sender: FDA-Public Use
  Company Number: US-BRISTOL-MYERS SQUIBB COMPANY-12495636

PATIENT
  Age: 59 Year
  Sex: Female

DRUGS (12)
  1. SERZONE [Suspect]
     Indication: DEPRESSION
     Dosage: DOSE GRADUALLY INCREASED UP TO 150 MG TWICE DAILY
     Route: 048
  2. ATENOLOL [Concomitant]
  3. ATIVAN [Concomitant]
  4. FLOVENT [Concomitant]
  5. SEREVENT [Concomitant]
  6. LORTAB [Concomitant]
  7. PRILOSEC [Concomitant]
  8. ALPRAZOLAM [Concomitant]
  9. DIAZEPAM [Concomitant]
  10. ELAVIL [Concomitant]
  11. NEXIUM [Concomitant]
  12. XANAX [Concomitant]

REACTIONS (12)
  - ABDOMINAL PAIN UPPER [None]
  - ALANINE AMINOTRANSFERASE INCREASED [None]
  - BLOOD ALKALINE PHOSPHATASE INCREASED [None]
  - FATIGUE [None]
  - FEELING HOT AND COLD [None]
  - GAMMA-GLUTAMYLTRANSFERASE INCREASED [None]
  - HEPATIC STEATOSIS [None]
  - NAUSEA [None]
  - OEDEMA PERIPHERAL [None]
  - PAIN [None]
  - PARAESTHESIA [None]
  - SOMNOLENCE [None]
